FAERS Safety Report 17722906 (Version 1)
Quarter: 2020Q2

REPORT INFORMATION
  Report Type: Spontaneous
  Country: IN (occurrence: IN)
  Receive Date: 20200429
  Receipt Date: 20200429
  Transmission Date: 20200714
  Serious: Yes (Hospitalization)
  Sender: FDA-Public Use
  Company Number: IN-MYLANLABS-2020M1041407

PATIENT
  Age: 40 Year
  Sex: Male

DRUGS (7)
  1. DAPTOMYCIN. [Suspect]
     Active Substance: DAPTOMYCIN
     Indication: ENDOCARDITIS ENTEROCOCCAL
     Dosage: 10 MILLIGRAM/KILOGRAM ON ALTERNATE DAYS
     Route: 065
     Dates: start: 20180304
  2. AMPICILLIN/SULBACTAM ACTAVIS [Concomitant]
     Active Substance: AMPICILLIN SODIUM\SULBACTAM SODIUM
     Indication: ENDOCARDITIS ENTEROCOCCAL
     Dosage: IN RENALLY MODIFIED DOSE
     Route: 065
     Dates: start: 20180301, end: 20180304
  3. VANCOMYCIN [Concomitant]
     Active Substance: VANCOMYCIN
     Indication: ENDOCARDITIS ENTEROCOCCAL
     Dosage: UNK
     Route: 042
     Dates: start: 20180225
  4. GENTAMICIN. [Suspect]
     Active Substance: GENTAMICIN
     Indication: ENDOCARDITIS ENTEROCOCCAL
     Dosage: UNK
     Route: 042
     Dates: start: 20180225
  5. DAPTOMYCIN. [Suspect]
     Active Substance: DAPTOMYCIN
     Dosage: 9 MILLIGRAM/KILOGRAM, QD
     Route: 065
     Dates: start: 201803
  6. FOSFOMYCIN [Concomitant]
     Active Substance: FOSFOMYCIN
     Indication: ENDOCARDITIS ENTEROCOCCAL
     Dosage: IN RENALLY MODIFIED DOSES
     Route: 042
     Dates: start: 20180317
  7. CEFTRIAXONE. [Concomitant]
     Active Substance: CEFTRIAXONE
     Indication: ENDOCARDITIS ENTEROCOCCAL
     Dosage: IN RENALLY MODIFIED DOSE
     Route: 065
     Dates: start: 20180301, end: 20180304

REACTIONS (3)
  - Acute kidney injury [Recovering/Resolving]
  - Pulmonary toxicity [Recovered/Resolved]
  - Eosinophilic pneumonia [Recovered/Resolved]

NARRATIVE: CASE EVENT DATE: 20180301
